FAERS Safety Report 6456794-7 (Version None)
Quarter: 2009Q4

REPORT INFORMATION
  Report Type: 
  Country: None (occurrence: None)
  Receive Date: 20091125
  Receipt Date: 20091117
  Transmission Date: 20100525
  Serious: Yes (Hospitalization)
  Sender: FDA-Public Use
  Company Number: FR-ROCHE-647467

PATIENT
  Sex: Male
  Weight: 62 kg

DRUGS (20)
  1. CAPECITABINE [Suspect]
     Indication: GASTRIC CANCER
     Dosage: DOSE, FORM, FREQUENCY: NOT REPORTED
     Route: 048
     Dates: start: 20080116
  2. CAPECITABINE [Suspect]
     Dosage: THERAPY WAS GIVEN DURING 15 DAYS.
     Route: 048
     Dates: start: 20080317
  3. CAPECITABINE [Suspect]
     Route: 048
  4. FOLFIRI [Suspect]
     Indication: GASTRIC CANCER
     Dosage: ROUTE, FORM, FREQUENCY UNKNOWN.  16 COURSES ARE COMPLETED.
     Route: 065
     Dates: start: 20070424, end: 20071226
  5. EPIRUBICIN [Suspect]
     Indication: GASTRIC CANCER
     Dosage: DOSE, FORM, FREQUENCY: NOT REPORTED, SOLUTION FOR INJECTION
     Route: 042
     Dates: start: 20080116
  6. EPIRUBICIN [Suspect]
     Dosage: FORM, FREQUENCY: NOT REPORTED.
     Route: 042
     Dates: start: 20080317
  7. CISPLATIN [Suspect]
     Indication: GASTRIC CANCER
     Dosage: DOSE, FORM, FREQUENCY: NOT REPORTED.
     Route: 042
     Dates: start: 20080116
  8. CISPLATIN [Suspect]
     Dosage: FORM, FREQUENCY: NOT REPORTED.
     Route: 042
     Dates: start: 20080317
  9. LIPANTHYL [Concomitant]
     Route: 048
  10. INNOHEP [Concomitant]
     Indication: THROMBOSIS PROPHYLAXIS
     Dosage: UNIT: UI
     Dates: end: 20080130
  11. INNOHEP [Concomitant]
  12. MOPRAL [Concomitant]
     Route: 048
  13. SPECIAFOLDINE [Concomitant]
     Indication: ANAEMIA
     Route: 048
  14. SPASFON [Concomitant]
     Route: 048
  15. LEVOCARNIL [Concomitant]
     Route: 048
  16. INIPOMP [Concomitant]
     Indication: GASTRIC DISORDER
     Route: 048
  17. SEVREDOL [Concomitant]
     Indication: PAIN
     Dosage: TDD: 10 MG X 6
     Route: 048
  18. SKENAN [Concomitant]
     Indication: PAIN
     Dosage: TDD: 60 MG X 2
     Route: 048
  19. RIVOTRIL [Concomitant]
     Dosage: TDD: 2.5 MG/ML
     Route: 048
     Dates: start: 20080114
  20. EPREX [Concomitant]
     Indication: ANAEMIA
     Route: 042
     Dates: start: 20080114

REACTIONS (22)
  - ABDOMINAL PAIN [None]
  - ANAEMIA [None]
  - ANXIETY [None]
  - ASCITES [None]
  - ASTHENIA [None]
  - CLOSTRIDIUM DIFFICILE COLITIS [None]
  - CULTURE URINE POSITIVE [None]
  - DECREASED APPETITE [None]
  - DEPRESSION [None]
  - DIARRHOEA [None]
  - DYSPHAGIA [None]
  - FATIGUE [None]
  - GENERAL PHYSICAL HEALTH DETERIORATION [None]
  - INSOMNIA [None]
  - KLEBSIELLA INFECTION [None]
  - NAUSEA [None]
  - OEDEMA PERIPHERAL [None]
  - OESOPHAGITIS [None]
  - PEPTIC ULCER [None]
  - VOMITING [None]
  - WEIGHT INCREASED [None]
  - WHITE BLOOD CELL COUNT DECREASED [None]
